FAERS Safety Report 23633450 (Version 1)
Quarter: 2024Q1

REPORT INFORMATION
  Report Type: Spontaneous
  Country: US (occurrence: US)
  Receive Date: 20240314
  Receipt Date: 20240314
  Transmission Date: 20240410
  Serious: Yes (Other)
  Sender: FDA-Public Use
  Company Number: US-TEVA-VS-3140954

PATIENT
  Age: 13 Year
  Sex: Male

DRUGS (1)
  1. HYDROXYZINE HYDROCHLORIDE [Suspect]
     Active Substance: HYDROXYZINE HYDROCHLORIDE
     Indication: Pain
     Route: 048
     Dates: start: 2023

REACTIONS (5)
  - Autoimmune disorder [Unknown]
  - Back pain [Unknown]
  - Arthralgia [Unknown]
  - Hypermobility syndrome [Unknown]
  - Product use in unapproved indication [Unknown]

NARRATIVE: CASE EVENT DATE: 20230101
